FAERS Safety Report 7220951-2 (Version None)
Quarter: 2011Q1

REPORT INFORMATION
  Report Type: 
  Country: None (occurrence: None)
  Receive Date: 20110112
  Receipt Date: 20101228
  Transmission Date: 20110831
  Serious: Yes (Hospitalization, Other)
  Sender: FDA-Public Use
  Company Number: US-RANBAXY-2010US-39508

PATIENT
  Sex: Male

DRUGS (11)
  1. VERAPAMIL [Suspect]
     Indication: ATRIAL FIBRILLATION
     Dosage: UNK, UNK
     Route: 065
     Dates: start: 20090401, end: 20100516
  2. CLARITHROMYCIN [Suspect]
     Indication: BRONCHITIS CHRONIC
     Dosage: 200 MG, QD
     Route: 048
     Dates: start: 20090818, end: 20100609
  3. TIOTROPIUM BROMIDE [Concomitant]
     Indication: EMPHYSEMA
     Dosage: UNK, UNK
     Route: 065
  4. SERETIDE [Concomitant]
     Indication: PNEUMONIA
     Dosage: UNK, UNK
     Route: 048
     Dates: start: 20100603, end: 20100606
  5. DISOPYRAMIDE [Suspect]
     Dosage: 300 MG, QD
     Route: 048
     Dates: start: 20100521, end: 20100609
  6. LEVOFLOXACIN [Suspect]
     Indication: PNEUMONIA
     Dosage: 500 MG, QD
     Route: 048
     Dates: start: 20100603, end: 20100609
  7. AMBROXOL [Concomitant]
     Indication: PNEUMONIA
     Dosage: 15 MG, UNK
     Route: 048
     Dates: start: 20100603, end: 20100608
  8. LEVOFLOXACIN [Suspect]
     Indication: PLEURAL EFFUSION
     Dosage: 500 MG, QD
     Route: 048
     Dates: start: 20100511, end: 20100513
  9. DISOPYRAMIDE [Suspect]
     Indication: ATRIAL FIBRILLATION
     Dosage: 300 MG, QD
     Route: 048
     Dates: start: 20090401, end: 20100518
  10. LEVOFLOXACIN [Suspect]
     Indication: PYREXIA
  11. MAGNESIUM OXIDE [Concomitant]
     Indication: CONSTIPATION
     Route: 042

REACTIONS (3)
  - DRUG INTERACTION [None]
  - OFF LABEL USE [None]
  - TORSADE DE POINTES [None]
